FAERS Safety Report 4537009-3 (Version None)
Quarter: 2004Q4

REPORT INFORMATION
  Report Type: 
  Country: None (occurrence: None)
  Receive Date: 20041220
  Receipt Date: 20041203
  Transmission Date: 20050328
  Serious: Yes (Hospitalization)
  Sender: FDA-Public Use
  Company Number: 9420

PATIENT
  Sex: Male

DRUGS (6)
  1. METHOTREXATE [Suspect]
     Indication: ANKYLOSING SPONDYLITIS
     Dosage: PO
     Route: 048
  2. METHOTREXATE [Suspect]
     Indication: PSORIATIC ARTHROPATHY
     Dosage: PO
     Route: 048
  3. ETANERCEPT [Suspect]
     Indication: ANKYLOSING SPONDYLITIS
     Dosage: SC
     Route: 058
  4. ETANERCEPT [Suspect]
     Indication: PSORIATIC ARTHROPATHY
     Dosage: SC
     Route: 058
  5. CORTICOSTEROIDS [Suspect]
     Indication: ANKYLOSING SPONDYLITIS
  6. CORTICOSTEROIDS [Suspect]
     Indication: PSORIATIC ARTHROPATHY

REACTIONS (5)
  - ARRHYTHMIA [None]
  - CONDITION AGGRAVATED [None]
  - CYST [None]
  - ECHINOCOCCIASIS [None]
  - MYOCARDIAL ISCHAEMIA [None]
